FAERS Safety Report 15826305 (Version 2)
Quarter: 2019Q1

REPORT INFORMATION
  Report Type: Spontaneous
  Country: PT (occurrence: PT)
  Receive Date: 20190115
  Receipt Date: 20190312
  Transmission Date: 20190417
  Serious: Yes (Hospitalization, Other)
  Sender: FDA-Public Use
  Company Number: PHHY2019PT004216

PATIENT
  Age: 84 Year
  Sex: Male

DRUGS (4)
  1. CEFUROXIME SODIUM. [Suspect]
     Active Substance: CEFUROXIME SODIUM
     Indication: ENDOPHTHALMITIS
     Dosage: UNK
     Route: 042
  2. CEFTAZIDIME. [Suspect]
     Active Substance: CEFTAZIDIME
     Indication: ENDOPHTHALMITIS
     Route: 047
  3. VANCOMYCIN [Suspect]
     Active Substance: VANCOMYCIN
     Indication: ENDOPHTHALMITIS
     Route: 050
  4. AMOXICILLIN SODIUM+POTASSIUM CLAVULANATE [Suspect]
     Active Substance: AMOXICILLIN\CLAVULANATE POTASSIUM
     Indication: URINARY TRACT INFECTION
     Dosage: 875+125 MG,EVERY 12 HOURS
     Route: 048
     Dates: start: 20170130, end: 20170203

REACTIONS (4)
  - Drug ineffective [Unknown]
  - Escherichia infection [Unknown]
  - Endophthalmitis [Unknown]
  - Amaurosis [Not Recovered/Not Resolved]

NARRATIVE: CASE EVENT DATE: 20170201
